FAERS Safety Report 8282391-7 (Version None)
Quarter: 2012Q2

REPORT INFORMATION
  Report Type: 
  Country: None (occurrence: None)
  Receive Date: 20120410
  Receipt Date: 20120330
  Transmission Date: 20120825
  Serious: Yes (Other)
  Sender: FDA-Public Use
  Company Number: 2012P1011407

PATIENT
  Age: 59 Year
  Sex: Female
  Weight: 98.4306 kg

DRUGS (5)
  1. HALDOL [Suspect]
     Indication: TOURETTE'S DISORDER
     Dosage: 5 MG;QD;PO
     Route: 048
     Dates: start: 20120328
  2. PIMOZIDE (NO PREF. NAME) [Suspect]
     Dosage: 4 MG;QD;PO
     Route: 048
     Dates: end: 20120301
  3. ORAP [Suspect]
     Indication: TOURETTE'S DISORDER
     Dosage: 2 MG;QD;PO
     Route: 048
     Dates: start: 19850101
  4. ORAP [Suspect]
     Indication: CONDITION AGGRAVATED
     Dosage: 2 MG;QD;PO
     Route: 048
     Dates: start: 19850101
  5. BENZTROPINE MESYLATE [Suspect]
     Indication: ADVERSE EVENT
     Dosage: ;QD OR BID;
     Dates: start: 20120101, end: 20120101

REACTIONS (5)
  - ANXIETY [None]
  - CONDITION AGGRAVATED [None]
  - TOURETTE'S DISORDER [None]
  - REFUSAL OF TREATMENT BY PATIENT [None]
  - FEAR [None]
